FAERS Safety Report 17351874 (Version 1)
Quarter: 2020Q1

REPORT INFORMATION
  Report Type: Spontaneous
  Country: AT (occurrence: AT)
  Receive Date: 20200130
  Receipt Date: 20200130
  Transmission Date: 20200409
  Serious: No
  Sender: FDA-Public Use
  Company Number: AT-TOLMAR, INC.-19AT001313

PATIENT
  Sex: Male

DRUGS (1)
  1. ELIGARD [Suspect]
     Active Substance: LEUPROLIDE ACETATE
     Indication: PRODUCT USED FOR UNKNOWN INDICATION
     Dosage: 45 MG, Q3MONTHS
     Route: 065

REACTIONS (5)
  - Wrong technique in product usage process [None]
  - Intercepted product preparation error [None]
  - Product leakage [None]
  - Product solubility abnormal [None]
  - Off label use [None]

NARRATIVE: CASE EVENT DATE: 20191126
